FAERS Safety Report 4454551-4 (Version None)
Quarter: 2004Q3

REPORT INFORMATION
  Report Type: 
  Country: None (occurrence: None)
  Receive Date: 20040917
  Receipt Date: 20040917
  Transmission Date: 20050211
  Serious: No
  Sender: FDA-Public Use
  Company Number: None

PATIENT
  Sex: Male

DRUGS (1)
  1. UNICORTICAL CANCELLOUS SPACER 82A007 [Suspect]
     Dosage: TISSUE ID PBA-72310048-03
     Dates: start: 20040804

REACTIONS (3)
  - BONE GRAFT [None]
  - GRAFT COMPLICATION [None]
  - POST PROCEDURAL COMPLICATION [None]
